FAERS Safety Report 7170361-1 (Version None)
Quarter: 2010Q4

REPORT INFORMATION
  Report Type: 
  Country: None (occurrence: None)
  Receive Date: 20101214
  Receipt Date: 20101214
  Transmission Date: 20110411
  Serious: Yes (Hospitalization)
  Sender: FDA-Public Use
  Company Number: None

PATIENT
  Age: 58 Year
  Sex: Female
  Weight: 68.0396 kg

DRUGS (1)
  1. VITAMIN D CAP [Suspect]
     Indication: VITAMIN D DEFICIENCY
     Dosage: 50,000 IU VITAM D  1 - PER MONTH
     Dates: start: 20100804

REACTIONS (10)
  - ASTHENIA [None]
  - CONSTIPATION [None]
  - COUGH [None]
  - DRY MOUTH [None]
  - FEELING ABNORMAL [None]
  - HEADACHE [None]
  - HYPOAESTHESIA [None]
  - MIDDLE INSOMNIA [None]
  - NIGHT SWEATS [None]
  - WEIGHT DECREASED [None]
